FAERS Safety Report 4431144-6 (Version None)
Quarter: 2004Q3

REPORT INFORMATION
  Report Type: 
  Country: None (occurrence: None)
  Receive Date: 20040823
  Receipt Date: 20040823
  Transmission Date: 20050211
  Serious: Yes (Life-Threatening, Hospitalization)
  Sender: FDA-Public Use
  Company Number: None

PATIENT
  Age: 50 Year
  Sex: Female
  Weight: 80.74 kg

DRUGS (1)
  1. MORPHINE [Suspect]
     Dosage: 10 PUSH INTRAVENOUS
     Route: 042
     Dates: start: 20030420, end: 20030420

REACTIONS (1)
  - HYPOTENSION [None]
